FAERS Safety Report 5322786-4 (Version None)
Quarter: 2007Q2

REPORT INFORMATION
  Report Type: 
  Country: None (occurrence: None)
  Receive Date: 20070511
  Receipt Date: 20070501
  Transmission Date: 20071010
  Serious: Yes (Hospitalization, Other)
  Sender: FDA-Public Use
  Company Number: US-PFIZER INC-2007017742

PATIENT
  Sex: Male
  Weight: 111.6 kg

DRUGS (3)
  1. GEODON [Suspect]
     Indication: SCHIZOPHRENIA, PARANOID TYPE
     Route: 048
  2. ZOLOFT [Suspect]
  3. CLOZAPINE [Suspect]

REACTIONS (10)
  - DISORIENTATION [None]
  - DRUG INEFFECTIVE [None]
  - HALLUCINATION, AUDITORY [None]
  - HEAT EXHAUSTION [None]
  - HYPONATRAEMIA [None]
  - MENTAL IMPAIRMENT [None]
  - NEGLECT OF PERSONAL APPEARANCE [None]
  - PARANOIA [None]
  - RHABDOMYOLYSIS [None]
  - WEIGHT DECREASED [None]
